FAERS Safety Report 8780601 (Version 1)
Quarter: 2012Q4

REPORT INFORMATION
  Report Type: 
  Country: US (occurrence: US)
  Receive Date: 20120913
  Receipt Date: 20120913
  Transmission Date: 20130627
  Serious: No
  Sender: FDA-Public Use
  Company Number: US-B.I. PHARMACEUTICALS,INC./RIDGEFIELD-2012-BP-22193BP

PATIENT
  Age: 81 Year
  Sex: Female
  Weight: 61 kg

DRUGS (8)
  1. PRADAXA [Suspect]
     Indication: ATRIAL FIBRILLATION
     Dosage: 150 mg
     Route: 048
     Dates: start: 201205
  2. CITALOPRAM [Concomitant]
     Route: 048
  3. VITAMIN D [Concomitant]
     Indication: ROUTINE HEALTH MAINTENANCE
     Route: 048
  4. OMEPRAZOLE [Concomitant]
     Route: 048
  5. LASIX [Concomitant]
     Dosage: (Tablet)
     Route: 048
  6. CALCIUM [Concomitant]
     Indication: ROUTINE HEALTH MAINTENANCE
     Route: 048
  7. MAGNESIUM OXIDE [Concomitant]
     Route: 048
  8. CRESTOR [Concomitant]
     Indication: BLOOD CHOLESTEROL INCREASED
     Route: 048

REACTIONS (1)
  - Arthralgia [Not Recovered/Not Resolved]
